FAERS Safety Report 6649529-6 (Version None)
Quarter: 2010Q1

REPORT INFORMATION
  Report Type: 
  Country: None (occurrence: None)
  Receive Date: 20100324
  Receipt Date: 20100324
  Transmission Date: 20100710
  Serious: Yes (Hospitalization)
  Sender: FDA-Public Use
  Company Number: None

PATIENT
  Sex: Female
  Weight: 47.6 kg

DRUGS (14)
  1. FLUOROURACIL [Suspect]
     Dosage: 8288 MG
  2. BEVACIZUMAB (RHUMAB VEGF) [Suspect]
     Dosage: 10 MG
  3. LEUCOVORIN CALCIUM [Suspect]
     Dosage: 1184 MG
  4. ELOXATIN [Suspect]
     Dosage: 252 MG
  5. AUGMENTIN '125' [Concomitant]
  6. BACLOFEN [Concomitant]
  7. MIRALAX [Concomitant]
  8. NYSTATIN [Concomitant]
  9. ONDANSETRON [Concomitant]
  10. PERCOCET [Concomitant]
  11. PROCHLORPERAZINE [Concomitant]
  12. TYLENOL-500 [Concomitant]
  13. VANCOMYCIN [Concomitant]
  14. ZOSYN [Concomitant]

REACTIONS (6)
  - ANAEMIA [None]
  - COUGH [None]
  - FLANK PAIN [None]
  - ORAL CANDIDIASIS [None]
  - URINARY TRACT INFECTION [None]
  - VOMITING [None]
